FAERS Safety Report 21080904 (Version 1)
Quarter: 2022Q3

REPORT INFORMATION
  Report Type: Other
  Country: US (occurrence: None)
  Receive Date: 20220714
  Receipt Date: 20220714
  Transmission Date: 20221027
  Serious: Yes (Death)
  Sender: FDA-Public Use
  Company Number: US-ROCHE-3138593

PATIENT
  Sex: Female
  Weight: 89.892 kg

DRUGS (9)
  1. PERJETA [Suspect]
     Active Substance: PERTUZUMAB
     Indication: Breast cancer female
     Dosage: VIAL, INFUSE 420MG INTRAVENOUSLY EVERY 21 DAY(S), DATE OF TREATMENT: 08/OCT/2020
     Route: 042
  2. PERJETA [Suspect]
     Active Substance: PERTUZUMAB
     Indication: Metastases to central nervous system
  3. TAXOTERE [Concomitant]
     Active Substance: DOCETAXEL
  4. KANJINTI [Concomitant]
     Active Substance: TRASTUZUMAB-ANNS
  5. BENADRYL [Concomitant]
     Active Substance: DIPHENHYDRAMINE HYDROCHLORIDE
  6. TYLENOL [Concomitant]
     Active Substance: ACETAMINOPHEN
  7. NEULASTA [Concomitant]
     Active Substance: PEGFILGRASTIM
  8. DECADRON [Concomitant]
     Active Substance: DEXAMETHASONE
  9. ZOFRAN [Concomitant]
     Active Substance: ONDANSETRON HYDROCHLORIDE

REACTIONS (1)
  - Death [Fatal]

NARRATIVE: CASE EVENT DATE: 20200101
